FAERS Safety Report 25071534 (Version 1)
Quarter: 2025Q1

REPORT INFORMATION
  Report Type: Report from Study
  Country: US (occurrence: US)
  Receive Date: 20250312
  Receipt Date: 20250312
  Transmission Date: 20250409
  Serious: Yes (Other)
  Sender: ABBVIE
  Company Number: US-ABBVIE-6110747

PATIENT
  Age: 60 Year
  Sex: Male

DRUGS (1)
  1. HUMIRA [Suspect]
     Active Substance: ADALIMUMAB
     Indication: Colitis ulcerative
     Route: 058
     Dates: start: 20250113

REACTIONS (4)
  - Postoperative abscess [Not Recovered/Not Resolved]
  - Dental cleaning [Unknown]
  - Post procedural haemorrhage [Unknown]
  - Mouth swelling [Unknown]

NARRATIVE: CASE EVENT DATE: 20250101
